FAERS Safety Report 8139588-6 (Version None)
Quarter: 2012Q1

REPORT INFORMATION
  Report Type: 
  Country: None (occurrence: None)
  Receive Date: 20120215
  Receipt Date: 20120203
  Transmission Date: 20120608
  Serious: Yes (Hospitalization)
  Sender: FDA-Public Use
  Company Number: PHEH2011US008853

PATIENT
  Sex: Female

DRUGS (1)
  1. GLEEVEC [Suspect]
     Indication: CHRONIC MYELOID LEUKAEMIA
     Dosage: 400 MG, DAILY
     Route: 048
     Dates: start: 20100119

REACTIONS (7)
  - PAIN IN EXTREMITY [None]
  - NAUSEA [None]
  - VOMITING [None]
  - MUSCLE SPASMS [None]
  - ASTHENIA [None]
  - INTERVERTEBRAL DISC PROTRUSION [None]
  - PAIN [None]
